FAERS Safety Report 4709814-1 (Version None)
Quarter: 2005Q3

REPORT INFORMATION
  Report Type: 
  Country: None (occurrence: None)
  Receive Date: 20050708
  Receipt Date: 20050628
  Transmission Date: 20060218
  Serious: Yes (Death, Hospitalization)
  Sender: FDA-Public Use
  Company Number: US-AMGEN-US141290

PATIENT
  Sex: Male
  Weight: 85.6 kg

DRUGS (13)
  1. ENBREL [Suspect]
     Indication: GRAFT VERSUS HOST DISEASE
     Route: 058
     Dates: start: 20050417, end: 20050617
  2. TACROLIMUS [Suspect]
     Route: 042
  3. ARANESP [Concomitant]
     Dates: start: 20050401, end: 20050422
  4. ACYCLOVIR [Concomitant]
     Dates: start: 20050416, end: 20050422
  5. VANCOMYCIN [Concomitant]
     Dates: start: 20050612, end: 20050622
  6. DOPAMINE HCL [Concomitant]
     Dates: start: 20050615, end: 20050622
  7. INSULIN [Concomitant]
     Dates: end: 20050622
  8. CEFEPIME [Concomitant]
     Dates: start: 20050616, end: 20050622
  9. ATGAM [Concomitant]
     Dates: start: 20050530, end: 20050602
  10. RITUXAN [Concomitant]
     Route: 042
     Dates: start: 20050620
  11. CAMPATH (ILEX PHARMACEUTICALS) [Concomitant]
     Dates: start: 20050612, end: 20050613
  12. CAMPATH (ILEX PHARMACEUTICALS) [Concomitant]
     Route: 042
     Dates: start: 20050613, end: 20050616
  13. LABETALOL [Concomitant]
     Dates: start: 20050321, end: 20050622

REACTIONS (6)
  - CYTOKINE STORM [None]
  - EPSTEIN-BARR VIRUS INFECTION [None]
  - GENERAL PHYSICAL HEALTH DETERIORATION [None]
  - GRAFT VERSUS HOST DISEASE [None]
  - METABOLIC ENCEPHALOPATHY [None]
  - RENAL FAILURE ACUTE [None]
